FAERS Safety Report 7692600-0 (Version None)
Quarter: 2011Q3

REPORT INFORMATION
  Report Type: 
  Country: None (occurrence: None)
  Receive Date: 20110819
  Receipt Date: 20110815
  Transmission Date: 20111222
  Serious: Yes (Hospitalization)
  Sender: FDA-Public Use
  Company Number: US-BIOGENIDEC-2011BI027631

PATIENT
  Age: 28 Year
  Sex: Male

DRUGS (4)
  1. METHOTREXATE [Concomitant]
  2. CIMZIA [Concomitant]
  3. ENTOCORT EC [Concomitant]
  4. TYSABRI [Suspect]
     Indication: CROHN'S DISEASE
     Dates: start: 20101015, end: 20110201

REACTIONS (2)
  - DRUG INEFFECTIVE [None]
  - SMALL INTESTINAL STENOSIS [None]
